FAERS Safety Report 6906234-6 (Version None)
Quarter: 2010Q3

REPORT INFORMATION
  Report Type: 
  Country: None (occurrence: None)
  Receive Date: 20100804
  Receipt Date: 20100728
  Transmission Date: 20110219
  Serious: Yes (Hospitalization)
  Sender: FDA-Public Use
  Company Number: AU-MPIJNJ-2010-03271

PATIENT

DRUGS (3)
  1. VELCADE [Suspect]
     Indication: MULTIPLE MYELOMA
     Dosage: 2.5 MG, UNK
     Dates: start: 20100318, end: 20100323
  2. ROMIDEPSIN [Suspect]
     Indication: MULTIPLE MYELOMA
     Dosage: 19.5 MG, UNK
     Dates: start: 20100315, end: 20100323
  3. DEXAMETHASONE [Suspect]
     Indication: MULTIPLE MYELOMA
     Dosage: 20 MG, UNK
     Dates: start: 20100319, end: 20100323

REACTIONS (1)
  - DISEASE PROGRESSION [None]
